FAERS Safety Report 17965410 (Version 1)
Quarter: 2020Q2

REPORT INFORMATION
  Report Type: Report from Study
  Country: CO (occurrence: CO)
  Receive Date: 20200630
  Receipt Date: 20200630
  Transmission Date: 20200714
  Serious: Yes (Other)
  Sender: FDA-Public Use
  Company Number: NVSC2019CO023406

PATIENT
  Age: 68 Year
  Sex: Female
  Weight: 48 kg

DRUGS (7)
  1. KISQALI [Suspect]
     Active Substance: RIBOCICLIB
     Indication: BREAST CANCER METASTATIC
     Dosage: 600 MG, QD (FOR 21 DAYS AND RESTS 7 DAYS)
     Route: 048
     Dates: start: 20191004
  2. KISQALI [Suspect]
     Active Substance: RIBOCICLIB
     Dosage: 600 MG, QD
     Route: 048
     Dates: start: 20191205
  3. KISQALI [Suspect]
     Active Substance: RIBOCICLIB
     Dosage: 400 MG, QD
     Route: 048
  4. PREGABALIN. [Suspect]
     Active Substance: PREGABALIN
     Indication: PRODUCT USED FOR UNKNOWN INDICATION
     Dosage: UNK
     Route: 048
  5. KISQALI [Suspect]
     Active Substance: RIBOCICLIB
     Dosage: 400 MG, QD (FOR 21 DAYS AND RESTS 7 DAYS)
     Route: 048
     Dates: start: 20191107, end: 20191128
  6. MORPHINE [Concomitant]
     Active Substance: MORPHINE
     Indication: ARTHRALGIA
     Dosage: 10 DRP, Q6H
     Route: 048
  7. FEMARA [Suspect]
     Active Substance: LETROZOLE
     Indication: BREAST CANCER
     Dosage: 2.5 MG, QD
     Route: 048
     Dates: start: 20191004

REACTIONS (8)
  - Dizziness [Unknown]
  - Diarrhoea [Unknown]
  - Platelet count decreased [Unknown]
  - Femur fracture [Unknown]
  - Hypersensitivity [Recovered/Resolved]
  - White blood cell count decreased [Unknown]
  - Decreased immune responsiveness [Unknown]
  - Abdominal pain upper [Unknown]

NARRATIVE: CASE EVENT DATE: 20191030
